FAERS Safety Report 4668470-1 (Version None)
Quarter: 2005Q2

REPORT INFORMATION
  Report Type: 
  Country: None (occurrence: None)
  Receive Date: 20050523
  Receipt Date: 20050513
  Transmission Date: 20051028
  Serious: Yes (Death)
  Sender: FDA-Public Use
  Company Number: 200511239EU

PATIENT
  Sex: Male

DRUGS (3)
  1. ARAVA [Suspect]
     Indication: RHEUMATOID ARTHRITIS
  2. CELECOXIB [Concomitant]
  3. CO-PROXAMOL [Concomitant]

REACTIONS (1)
  - LEUKAEMIA GRANULOCYTIC [None]
